FAERS Safety Report 4323417-2 (Version None)
Quarter: 2004Q1

REPORT INFORMATION
  Report Type: 
  Country: None (occurrence: None)
  Receive Date: 20040325
  Receipt Date: 20040225
  Transmission Date: 20041129
  Serious: Yes (Death, Hospitalization)
  Sender: FDA-Public Use
  Company Number: WAES 0402USA01957

PATIENT
  Age: 61 Year
  Sex: Female

DRUGS (7)
  1. FOSAMAX [Suspect]
     Indication: OSTEOPOROSIS
     Route: 048
     Dates: start: 20040211, end: 20040217
  2. ALFAROL [Concomitant]
     Route: 048
     Dates: end: 20040201
  3. ROCALTROL [Concomitant]
     Indication: OSTEOPOROSIS
     Route: 048
     Dates: start: 20040111, end: 20040117
  4. CALCIUM ASPARTATE [Concomitant]
     Indication: OSTEOPOROSIS
     Route: 048
     Dates: start: 20040111, end: 20040117
  5. MELPHALAN [Suspect]
     Indication: MULTIPLE MYELOMA
     Route: 048
     Dates: end: 20040201
  6. PREDONINE [Suspect]
     Indication: MULTIPLE MYELOMA
     Route: 048
     Dates: start: 20040111, end: 20040117
  7. ULCERLMIN [Concomitant]
     Indication: PROPHYLAXIS
     Route: 048
     Dates: start: 20020308, end: 20040229

REACTIONS (7)
  - BLOOD PRESSURE DECREASED [None]
  - CARDIAC AMYLOIDOSIS [None]
  - CARDIAC FAILURE CONGESTIVE [None]
  - CARDIO-RESPIRATORY ARREST [None]
  - CONDITION AGGRAVATED [None]
  - NODAL RHYTHM [None]
  - SICK SINUS SYNDROME [None]
